FAERS Safety Report 4444606-2 (Version None)
Quarter: 2004Q3

REPORT INFORMATION
  Report Type: 
  Country: None (occurrence: None)
  Receive Date: 20040902
  Receipt Date: 20040824
  Transmission Date: 20050211
  Serious: Yes (Life-Threatening, Hospitalization)
  Sender: FDA-Public Use
  Company Number: 2004229851US

PATIENT
  Age: 10 Year
  Sex: Female
  Weight: 23.2 kg

DRUGS (3)
  1. GENOTROPIN [Suspect]
     Indication: HYPOPITUITARISM
     Dosage: 6.3 MG, WEEKLY, SUBCUTANEOUS
     Route: 058
     Dates: start: 20011011
  2. GANTRISIN (SULFAFURAZOLE) [Concomitant]
  3. PREVACID [Concomitant]

REACTIONS (2)
  - ABDOMINAL ADHESIONS [None]
  - SMALL INTESTINAL OBSTRUCTION [None]
